FAERS Safety Report 9170601 (Version 1)
Quarter: 2013Q1

REPORT INFORMATION
  Report Type: Spontaneous
  Country: US (occurrence: None)
  Receive Date: 20130308
  Receipt Date: 20130308
  Transmission Date: 20140127
  Serious: Yes (Hospitalization)
  Sender: FDA-Public Use
  Company Number: 001486718A

PATIENT
  Age: 27 Year
  Sex: Female

DRUGS (5)
  1. BENZOYL PEROXIDE CLEANSING [Suspect]
     Indication: ACNE
     Dosage: DERMAL
     Dates: start: 20130118
  2. PROACTIV REPAIRING TREATMENT [Suspect]
     Indication: ACNE
     Dosage: DERMAL
     Dates: start: 20130118
  3. PROACTIV DEEP CLEANSING WASH [Suspect]
     Indication: ACNE
     Dosage: ONCE DERMAL
     Dates: start: 20130118
  4. PROACTIV ADVANCED BLEMISH TREATMENT [Suspect]
     Indication: ACNE
  5. PROACTIV DARK SPOT CORRECTOR [Suspect]
     Indication: ACNE
     Dosage: ONCE DERMAL
     Dates: start: 20130118

REACTIONS (4)
  - Erythema [None]
  - Rash macular [None]
  - Lip swelling [None]
  - Nasal oedema [None]
